FAERS Safety Report 5854112-6 (Version None)
Quarter: 2008Q3

REPORT INFORMATION
  Report Type: 
  Country: None (occurrence: None)
  Receive Date: 20080822
  Receipt Date: 20080811
  Transmission Date: 20090109
  Serious: Yes (Other)
  Sender: FDA-Public Use
  Company Number: ZA-ROCHE-578232

PATIENT
  Sex: Male

DRUGS (4)
  1. PEGASYS [Suspect]
     Indication: HEPATITIS C
     Route: 065
  2. PEGASYS [Suspect]
     Dosage: THREAPY WITH HALF DOSAGE
     Route: 065
     Dates: end: 20080728
  3. COPEGUS [Suspect]
     Indication: HEPATITIS C
     Route: 065
  4. COPEGUS [Suspect]
     Dosage: THREAPY WITH HALF DOSAGE
     Route: 065
     Dates: end: 20080728

REACTIONS (6)
  - DIPLOPIA [None]
  - MYODESOPSIA [None]
  - NERVOUSNESS [None]
  - NEURITIS [None]
  - PSYCHIATRIC SYMPTOM [None]
  - RETINAL DETACHMENT [None]
